FAERS Safety Report 8100094-6 (Version None)
Quarter: 2012Q1

REPORT INFORMATION
  Report Type: 
  Country: None (occurrence: None)
  Receive Date: 20120129
  Receipt Date: 20111110
  Transmission Date: 20120608
  Serious: No
  Sender: FDA-Public Use
  Company Number: US-ABBOTT-11P-163-0873409-00

PATIENT
  Age: 23 Year
  Sex: Male

DRUGS (5)
  1. BALSALAZIDE DISODIUM [Concomitant]
     Indication: PRODUCT USED FOR UNKNOWN INDICATION
  2. IMURAN [Concomitant]
     Indication: COLITIS ULCERATIVE
  3. HUMIRA [Suspect]
     Indication: COLITIS ULCERATIVE
     Dates: start: 20110819
  4. IRON [Concomitant]
     Indication: MINERAL SUPPLEMENTATION
  5. PREDNISONE TAB [Concomitant]
     Indication: INFLAMMATION

REACTIONS (1)
  - COLITIS ULCERATIVE [None]
